FAERS Safety Report 9134697 (Version 1)
Quarter: 2013Q1

REPORT INFORMATION
  Report Type: Spontaneous
  Country: US (occurrence: US)
  Receive Date: 20130304
  Receipt Date: 20130304
  Transmission Date: 20140127
  Serious: No
  Sender: FDA-Public Use
  Company Number: US-ENDO PHARMACEUTICALS INC.-VALS20110082

PATIENT
  Age: 73 Year
  Sex: Male

DRUGS (1)
  1. VALSTAR [Suspect]
     Indication: PRODUCT USED FOR UNKNOWN INDICATION
     Route: 043
     Dates: start: 20111219

REACTIONS (2)
  - Gait disturbance [Unknown]
  - Dysuria [Unknown]
